FAERS Safety Report 9057184 (Version 1)
Quarter: 2013Q1

REPORT INFORMATION
  Report Type: Report from Study
  Country: DE (occurrence: DE)
  Receive Date: 20130131
  Receipt Date: 20130131
  Transmission Date: 20140127
  Serious: Yes (Hospitalization)
  Sender: FDA-Public Use
  Company Number: DE-ROCHE-1183908

PATIENT
  Age: 73 None
  Sex: Female
  Weight: 79 kg

DRUGS (3)
  1. CAPECITABINE [Suspect]
     Indication: BREAST CANCER
     Dosage: LAST DOSE PRIOR TO SAE 22/APR/2012
     Route: 048
     Dates: start: 20120319, end: 20120430
  2. PACLITAXEL [Suspect]
     Indication: BREAST CANCER
     Route: 042
     Dates: start: 20120319, end: 20120430
  3. PACLITAXEL [Suspect]
     Route: 042
     Dates: start: 20120604

REACTIONS (1)
  - Cystitis haemorrhagic [Recovered/Resolved]
